FAERS Safety Report 8846880 (Version 1)
Quarter: 2012Q4

REPORT INFORMATION
  Report Type: Spontaneous
  Country: US (occurrence: None)
  Receive Date: 20121016
  Receipt Date: 20121016
  Transmission Date: 20130627
  Serious: Yes (Death, Other)
  Sender: FDA-Public Use
  Company Number: FK201202997

PATIENT
  Age: 71 Year
  Sex: Female

DRUGS (1)
  1. HEPARIN (MANUFACTURER UNKNOWN)(HEPARIN)(HEPARIN) [Suspect]
     Indication: ANTICOAGULANT THERAPY

REACTIONS (2)
  - Pulmonary embolism [None]
  - Heparin-induced thrombocytopenia [None]
